FAERS Safety Report 9779726 (Version 2)
Quarter: 2014Q1

REPORT INFORMATION
  Report Type: Spontaneous
  Country: US (occurrence: US)
  Receive Date: 20131223
  Receipt Date: 20140213
  Transmission Date: 20141002
  Serious: Yes (Death)
  Sender: FDA-Public Use
  Company Number: US-GLAXOSMITHKLINE-A1053921A

PATIENT
  Age: 75 Year
  Sex: Male

DRUGS (10)
  1. PROMACTA [Suspect]
     Indication: IMMUNE THROMBOCYTOPENIC PURPURA
     Dosage: 75MG PER DAY
     Route: 048
     Dates: start: 20130429, end: 20130519
  2. COREG [Concomitant]
  3. ARICEPT [Concomitant]
  4. FUROSEMIDE [Concomitant]
  5. HYDRALAZINE [Concomitant]
  6. NOVOLOG [Concomitant]
  7. ISOSORBIDE [Concomitant]
  8. PROTONIX [Concomitant]
  9. ZOCOR [Concomitant]
  10. FLOMAX [Concomitant]

REACTIONS (3)
  - Immune thrombocytopenic purpura [Fatal]
  - Cardiac failure congestive [Fatal]
  - Renal failure chronic [Fatal]
